FAERS Safety Report 5093275-X (Version None)
Quarter: 2006Q3

REPORT INFORMATION
  Report Type: 
  Country: None (occurrence: None)
  Receive Date: 20060829
  Receipt Date: 20060829
  Transmission Date: 20061208
  Serious: No
  Sender: FDA-Public Use
  Company Number: None

PATIENT
  Age: 62 Year
  Sex: Male
  Weight: 69 kg

DRUGS (3)
  1. CIPROFLOXACIN [Suspect]
     Indication: URINARY TRACT INFECTION
     Dosage: 400 MG Q12H IV
     Route: 042
     Dates: start: 20060614, end: 20060615
  2. SULFAMETHOXAZOLE + TRIMETHOPRIM [Concomitant]
  3. CEFTRIAXONE [Concomitant]

REACTIONS (3)
  - BODY TEMPERATURE INCREASED [None]
  - INJECTION SITE ERYTHEMA [None]
  - INJECTION SITE IRRITATION [None]
